FAERS Safety Report 6072022-9 (Version None)
Quarter: 2009Q1

REPORT INFORMATION
  Report Type: 
  Country: None (occurrence: None)
  Receive Date: 20090205
  Receipt Date: 20090205
  Transmission Date: 20090719
  Serious: Yes (Hospitalization)
  Sender: FDA-Public Use
  Company Number: None

PATIENT
  Sex: Male
  Weight: 84.3 kg

DRUGS (2)
  1. CYTARABINE [Suspect]
     Dosage: 32000 MG
     Dates: end: 20090109
  2. ETOPOSIDE [Suspect]
     Dosage: 3128 MG
     Dates: end: 20090109

REACTIONS (4)
  - BACTERIAL INFECTION [None]
  - FACE OEDEMA [None]
  - FEBRILE NEUTROPENIA [None]
  - PAIN IN JAW [None]
